FAERS Safety Report 7293103-8 (Version None)
Quarter: 2011Q1

REPORT INFORMATION
  Report Type: 
  Country: None (occurrence: None)
  Receive Date: 20110215
  Receipt Date: 20110204
  Transmission Date: 20110831
  Serious: Yes (Life-Threatening)
  Sender: FDA-Public Use
  Company Number: IT-ROCHE-757703

PATIENT
  Sex: Female

DRUGS (4)
  1. ARMOLIPID [Concomitant]
     Dosage: DOSE, ROUTE AND FREQUENCY UNKNOWN
  2. ROACTEMRA [Suspect]
     Indication: RHEUMATOID ARTHRITIS
     Route: 042
     Dates: start: 20100706, end: 20100906
  3. METOTREXATO [Concomitant]
     Dosage: FREQUENCY: UNKNOWN
     Route: 030
     Dates: start: 20040101, end: 20101001
  4. ARAVA [Concomitant]
     Dosage: FREQUENCY: UNKNOWN
     Route: 048
     Dates: start: 20050101, end: 20101001

REACTIONS (2)
  - CEREBROVASCULAR ACCIDENT [None]
  - ACUTE MYOCARDIAL INFARCTION [None]
